FAERS Safety Report 20157131 (Version 1)
Quarter: 2021Q4

REPORT INFORMATION
  Report Type: Spontaneous
  Country: US (occurrence: US)
  Receive Date: 20211207
  Receipt Date: 20211207
  Transmission Date: 20220304
  Serious: No
  Sender: FDA-Public Use
  Company Number: US-BRAINTREE LABORATORIES, INC.-2021BTE00723

PATIENT
  Age: 73 Year
  Sex: Female
  Weight: 90.703 kg

DRUGS (10)
  1. SUTAB [Suspect]
     Active Substance: MAGNESIUM SULFATE\POTASSIUM CHLORIDE\SODIUM SULFATE
     Indication: Colonoscopy
     Dosage: 1 X 24 TABLETS, 1X
     Route: 048
     Dates: start: 20210823, end: 20210823
  2. ASPIRIN [Concomitant]
     Active Substance: ASPIRIN
  3. B COMPLEX-VITAMIN C [Concomitant]
  4. INVOKANA [Concomitant]
     Active Substance: CANAGLIFLOZIN
  5. ONDANSETRON [Concomitant]
     Active Substance: ONDANSETRON
  6. OMEPRAZOLE [Concomitant]
     Active Substance: OMEPRAZOLE
  7. IRON [Concomitant]
     Active Substance: IRON
  8. ROSUVASTATIN [Concomitant]
     Active Substance: ROSUVASTATIN
  9. TRIAMTERENE [Concomitant]
     Active Substance: TRIAMTERENE
  10. VITAMIN D [Concomitant]
     Active Substance: VITAMIN D NOS

REACTIONS (6)
  - Stress [Recovering/Resolving]
  - Abdominal discomfort [Recovering/Resolving]
  - Drug ineffective [Recovered/Resolved]
  - Vomiting [Recovered/Resolved]
  - Nausea [Unknown]
  - Wrong technique in product usage process [Recovered/Resolved]

NARRATIVE: CASE EVENT DATE: 20210801
